FAERS Safety Report 6611592-6 (Version None)
Quarter: 2010Q1

REPORT INFORMATION
  Report Type: 
  Country: None (occurrence: None)
  Receive Date: 20100222
  Receipt Date: 20100209
  Transmission Date: 20100710
  Serious: Yes (Other)
  Sender: FDA-Public Use
  Company Number: A-CH2009-31221

PATIENT
  Age: 35 Year
  Sex: Male

DRUGS (3)
  1. ZAVESCA [Suspect]
     Indication: GAUCHER'S DISEASE
     Dosage: 100 MG, TID, ORAL 100 MG, OD, ORAL
     Route: 048
     Dates: start: 20081201
  2. ZAVESCA [Suspect]
     Indication: GAUCHER'S DISEASE
     Dosage: 100 MG, TID, ORAL 100 MG, OD, ORAL
     Route: 048
     Dates: start: 20090301
  3. ZOMETA (ZOLENDRONIC) [Concomitant]

REACTIONS (6)
  - ARTHRITIS [None]
  - BLOOD BILIRUBIN INCREASED [None]
  - CHRONIC HEPATITIS [None]
  - HEPATIC FIBROSIS [None]
  - HEPATITIS B POSITIVE [None]
  - PAIN [None]
